FAERS Safety Report 5635542-4 (Version None)
Quarter: 2008Q1

REPORT INFORMATION
  Report Type: 
  Country: None (occurrence: None)
  Receive Date: 20080222
  Receipt Date: 20080211
  Transmission Date: 20080703
  Serious: Yes (Other)
  Sender: FDA-Public Use
  Company Number: CA-PFIZER INC-2008014890

PATIENT
  Age: 46 Year
  Sex: Male

DRUGS (3)
  1. CHANTIX [Suspect]
     Indication: SMOKING CESSATION THERAPY
     Route: 048
  2. ALL OTHER THERAPEUTIC PRODUCTS [Concomitant]
     Indication: HIV INFECTION
  3. CLONAZEPAM [Concomitant]
     Indication: ANXIETY DISORDER

REACTIONS (7)
  - ANXIETY [None]
  - BACK PAIN [None]
  - CONVULSION [None]
  - FACIAL NEURALGIA [None]
  - MUSCULOSKELETAL PAIN [None]
  - NECK PAIN [None]
  - PARAESTHESIA [None]
